FAERS Safety Report 22050849 (Version 1)
Quarter: 2023Q1

REPORT INFORMATION
  Report Type: Spontaneous
  Country: US (occurrence: None)
  Receive Date: 20230301
  Receipt Date: 20230301
  Transmission Date: 20230418
  Serious: No
  Sender: FDA-Public Use
  Company Number: 2023A040177

PATIENT
  Age: 775 Month
  Sex: Female
  Weight: 65.8 kg

DRUGS (1)
  1. CRESTOR [Suspect]
     Active Substance: ROSUVASTATIN CALCIUM
     Indication: Blood cholesterol increased
     Route: 048

REACTIONS (11)
  - Abdominal pain [Unknown]
  - Abdominal discomfort [Unknown]
  - Memory impairment [Not Recovered/Not Resolved]
  - Pain in extremity [Unknown]
  - Asthenia [Unknown]
  - Fatigue [Unknown]
  - Cataract [Unknown]
  - Weight decreased [Unknown]
  - Product confusion [Unknown]
  - Product dose omission issue [Unknown]
  - Product size issue [Unknown]

NARRATIVE: CASE EVENT DATE: 20230101
